FAERS Safety Report 25329567 (Version 1)
Quarter: 2025Q2

REPORT INFORMATION
  Report Type: Report from Study
  Country: CA (occurrence: CA)
  Receive Date: 20250519
  Receipt Date: 20250519
  Transmission Date: 20250717
  Serious: Yes (Hospitalization)
  Sender: TAKEDA
  Company Number: CA-TAKEDA-2025TUS045124

PATIENT
  Sex: Female

DRUGS (5)
  1. VEDOLIZUMAB [Suspect]
     Active Substance: VEDOLIZUMAB
     Indication: Crohn^s disease
  2. FERROUS SULFATE [Concomitant]
     Active Substance: FERROUS SULFATE
  3. PURINETHOL [Concomitant]
     Active Substance: MERCAPTOPURINE
  4. PENTASA [Concomitant]
     Active Substance: MESALAMINE
  5. PREDNISONE [Concomitant]
     Active Substance: PREDNISONE
     Indication: Hepatic cirrhosis

REACTIONS (1)
  - Anaemia [Unknown]
